FAERS Safety Report 15297614 (Version 1)
Quarter: 2018Q3

REPORT INFORMATION
  Report Type: Spontaneous
  Country: IT (occurrence: IT)
  Receive Date: 20180820
  Receipt Date: 20180820
  Transmission Date: 20181010
  Serious: Yes (Hospitalization)
  Sender: FDA-Public Use
  Company Number: IT-SA-2018SA219244

PATIENT
  Age: 11 Year
  Sex: Female

DRUGS (21)
  1. TACHIPIRINA [Concomitant]
     Active Substance: ACETAMINOPHEN
     Route: 048
  2. ENAPREN [Concomitant]
     Active Substance: ENALAPRIL MALEATE
  3. METHOTREXATE. [Suspect]
     Active Substance: METHOTREXATE
     Dosage: 15 MG, QCY
     Route: 042
     Dates: start: 20171119, end: 20171124
  4. EMEND [APREPITANT] [Concomitant]
     Dates: start: 20171111, end: 20171113
  5. URBASON [METHYLPREDNISOLONE] [Concomitant]
     Route: 042
     Dates: start: 20171114
  6. NYSTATIN. [Concomitant]
     Active Substance: NYSTATIN
  7. ALOXI [Concomitant]
     Active Substance: PALONOSETRON HYDROCHLORIDE
     Dates: start: 20171111
  8. URSODEOXYCHOLIC ACID [Concomitant]
     Active Substance: URSODIOL
  9. UROMITEXAN [Concomitant]
     Active Substance: MESNA
     Dates: start: 20171115
  10. FLUCONAZOLE. [Concomitant]
     Active Substance: FLUCONAZOLE
  11. LASIX [Concomitant]
     Active Substance: FUROSEMIDE
     Route: 042
     Dates: start: 20171110
  12. SANDIMMUN [Concomitant]
     Active Substance: CYCLOSPORINE
     Dates: start: 20171113
  13. ACICLOVIR [Concomitant]
     Active Substance: ACYCLOVIR
     Dosage: 180 MG
     Route: 042
     Dates: start: 20171114, end: 20171211
  14. CIPROFLOXACIN. [Concomitant]
     Active Substance: CIPROFLOXACIN
     Route: 048
     Dates: start: 20171110, end: 20171115
  15. TRIMETON [CHLORPHENAMINE MALEATE] [Concomitant]
     Route: 042
  16. THYMOGLOBULIN [Suspect]
     Active Substance: LAPINE T-LYMPHOCYTE IMMUNE GLOBULIN
     Dosage: 137.5 MG, QD
     Route: 042
     Dates: start: 20171113, end: 20171115
  17. ENDOXAN [CYCLOPHOSPHAMIDE MONOHYDRATE] [Suspect]
     Active Substance: CYCLOPHOSPHAMIDE
     Indication: ALLOGENIC BONE MARROW TRANSPLANTATION THERAPY
     Dosage: 3300 MG, QD
     Route: 042
     Dates: start: 20171113, end: 20171114
  18. RANITIDINE. [Concomitant]
     Active Substance: RANITIDINE
     Route: 042
  19. ANTRA [OMEPRAZOLE] [Concomitant]
     Route: 042
  20. THIOTEPA. [Suspect]
     Active Substance: THIOTEPA
     Indication: ALLOGENIC BONE MARROW TRANSPLANTATION THERAPY
     Dosage: 275 MG, QD
     Route: 042
     Dates: start: 20171111, end: 20171112
  21. ACICLOVIR [Concomitant]
     Active Substance: ACYCLOVIR
     Dosage: 2400 MG
     Route: 048
     Dates: start: 20171110, end: 20171113

REACTIONS (3)
  - Mucosal inflammation [Recovered/Resolved]
  - Epistaxis [Recovered/Resolved]
  - Ejection fraction decreased [Recovered/Resolved]

NARRATIVE: CASE EVENT DATE: 20171121
